FAERS Safety Report 8228558-5 (Version None)
Quarter: 2012Q1

REPORT INFORMATION
  Report Type: 
  Country: None (occurrence: None)
  Receive Date: 20120322
  Receipt Date: 20110531
  Transmission Date: 20120608
  Serious: Yes (Hospitalization)
  Sender: FDA-Public Use
  Company Number: US-BRISTOL-MYERS SQUIBB COMPANY-15671688

PATIENT
  Age: 57 Year
  Sex: Male

DRUGS (5)
  1. ERBITUX [Suspect]
     Indication: COLON CANCER
     Dosage: ERBITUX INFUSION GIVEN FOR  5 MINUTES OF INFUSION AND APPROXIMATELY 13 CC GIVEN
     Route: 042
     Dates: start: 20110406
  2. LEUCOVORIN CALCIUM [Concomitant]
     Dosage: INFUSION
  3. NICOTINE [Concomitant]
     Dosage: NICOTIN PATCH
  4. FLUOROURACIL [Concomitant]
     Dosage: INFUSION
  5. IRINOTECAN HCL [Concomitant]
     Dosage: INFUSION

REACTIONS (1)
  - HYPERSENSITIVITY [None]
